FAERS Safety Report 5560621-X (Version None)
Quarter: 2007Q4

REPORT INFORMATION
  Report Type: 
  Country: None (occurrence: None)
  Receive Date: 20071215
  Receipt Date: 20071119
  Transmission Date: 20080405
  Serious: Yes (Hospitalization)
  Sender: FDA-Public Use
  Company Number: US-ABBOTT-07P-163-0425098-00

PATIENT
  Sex: Female
  Weight: 56.75 kg

DRUGS (11)
  1. HUMIRA [Suspect]
     Indication: RHEUMATOID ARTHRITIS
     Route: 058
     Dates: start: 20060801, end: 20070201
  2. HUMIRA [Suspect]
     Route: 058
     Dates: start: 20070201, end: 20071024
  3. HUMIRA [Suspect]
     Route: 058
     Dates: start: 20071108
  4. DEFLAZACORT [Concomitant]
     Indication: DIABETES MELLITUS
     Route: 048
     Dates: start: 20040101
  5. METOPROLOL SUCCINATE [Concomitant]
     Indication: BLOOD PRESSURE
     Route: 048
     Dates: start: 20050101
  6. PANTOPRAZOLE SODIUM [Concomitant]
     Indication: GASTROOESOPHAGEAL REFLUX DISEASE
     Route: 048
     Dates: start: 20050101
  7. TIZANIDINE HCL [Concomitant]
     Indication: MUSCLE RELAXANT THERAPY
     Route: 048
     Dates: start: 20060101
  8. METHADONE HCL [Concomitant]
     Indication: ARTHRALGIA
     Route: 048
     Dates: start: 20060101
  9. COLESEVELAM HYDROCHLORIDE [Concomitant]
     Indication: BLOOD CHOLESTEROL
     Route: 048
     Dates: start: 20060101
  10. EPOGEN [Concomitant]
     Indication: IRON DEFICIENCY
     Route: 055
     Dates: start: 20060101
  11. SERETIDE [Concomitant]
     Indication: ASTHMA
     Route: 055
     Dates: start: 20030101

REACTIONS (2)
  - CORONARY ARTERY OCCLUSION [None]
  - DRUG INEFFECTIVE [None]
